FAERS Safety Report 5522198-4 (Version None)
Quarter: 2007Q4

REPORT INFORMATION
  Report Type: 
  Country: None (occurrence: None)
  Receive Date: 20071120
  Receipt Date: 20071112
  Transmission Date: 20080405
  Serious: Yes (Hospitalization)
  Sender: FDA-Public Use
  Company Number: B0492786A

PATIENT
  Age: 56 Year
  Sex: Male

DRUGS (9)
  1. ROSIGLITAZONE [Suspect]
     Dosage: 4MG TWICE PER DAY
     Route: 048
     Dates: start: 20061214
  2. ACTRAPID [Concomitant]
     Dosage: 64IU PER DAY
  3. PROTAPHANE [Concomitant]
     Dosage: 24IU PER DAY
  4. RAMIPRIL [Concomitant]
     Dosage: 2.5MG PER DAY
  5. BLOPRESS [Concomitant]
     Dosage: 8MG PER DAY
  6. HYDROCHLOROTHIAZIDE [Concomitant]
     Dosage: 50MG PER DAY
     Dates: start: 20070510
  7. AMLODIPINE [Concomitant]
     Dosage: 10MG PER DAY
  8. FUROSEMIDE [Concomitant]
     Dosage: 250MG PER DAY
  9. MOXONIDINE [Concomitant]
     Dosage: .6MG PER DAY

REACTIONS (6)
  - DYSPNOEA EXERTIONAL [None]
  - OEDEMA [None]
  - OEDEMA PERIPHERAL [None]
  - RALES [None]
  - RENAL INJURY [None]
  - WEIGHT INCREASED [None]
